FAERS Safety Report 7266132-8 (Version None)
Quarter: 2011Q1

REPORT INFORMATION
  Report Type: 
  Country: None (occurrence: None)
  Receive Date: 20110131
  Receipt Date: 20110125
  Transmission Date: 20110831
  Serious: Yes (Hospitalization)
  Sender: FDA-Public Use
  Company Number: US-B.I. PHARMACEUTICALS,INC./RIDGEFIELD-2011-BP-01513BP

PATIENT
  Age: 63 Year
  Sex: Female

DRUGS (3)
  1. PRADAXA [Suspect]
     Indication: ATRIAL FIBRILLATION
     Dosage: 300 MG
     Route: 048
     Dates: start: 20101216, end: 20101221
  2. PRADAXA [Suspect]
     Dosage: 300 MG
     Route: 048
     Dates: start: 20101229, end: 20110124
  3. INSULIN [Concomitant]

REACTIONS (5)
  - ANAEMIA [None]
  - HAEMATOCHEZIA [None]
  - HEART RATE INCREASED [None]
  - HYPOTENSION [None]
  - COLONIC POLYP [None]
